FAERS Safety Report 14787853 (Version 4)
Quarter: 2020Q1

REPORT INFORMATION
  Report Type: Spontaneous
  Country: US (occurrence: US)
  Receive Date: 20180422
  Receipt Date: 20200121
  Transmission Date: 20200409
  Serious: Yes (Other)
  Sender: FDA-Public Use
  Company Number: US-ASTRAZENECA-2018SE47870

PATIENT
  Age: 22278 Day
  Sex: Male

DRUGS (38)
  1. NEXIUM [Suspect]
     Active Substance: ESOMEPRAZOLE MAGNESIUM
     Route: 048
     Dates: start: 1991, end: 2016
  2. NOVOLOG [Concomitant]
     Active Substance: INSULIN ASPART
  3. PENTOXIFYLLINE. [Concomitant]
     Active Substance: PENTOXIFYLLINE
  4. NEXIUM [Suspect]
     Active Substance: ESOMEPRAZOLE MAGNESIUM
     Route: 048
     Dates: start: 20050315
  5. ALBUTEROL. [Concomitant]
     Active Substance: ALBUTEROL
  6. VIOXX [Concomitant]
     Active Substance: ROFECOXIB
  7. MACROBID [Concomitant]
     Active Substance: NITROFURANTOIN\NITROFURANTOIN MONOHYDRATE
  8. QVAR [Concomitant]
     Active Substance: BECLOMETHASONE DIPROPIONATE
  9. POTASSIUM CHLORIDE. [Concomitant]
     Active Substance: POTASSIUM CHLORIDE
  10. YOHIMBINE [Concomitant]
     Active Substance: YOHIMBINE
  11. PREVACID [Suspect]
     Active Substance: LANSOPRAZOLE
     Route: 065
     Dates: start: 1991, end: 2016
  12. LISINOPRIL. [Concomitant]
     Active Substance: LISINOPRIL
  13. PLAVIX [Concomitant]
     Active Substance: CLOPIDOGREL BISULFATE
  14. COMBIVENT [Concomitant]
     Active Substance: ALBUTEROL SULFATE\IPRATROPIUM BROMIDE
  15. SINGULAIR [Concomitant]
     Active Substance: MONTELUKAST SODIUM
  16. HUMALOG [Concomitant]
     Active Substance: INSULIN LISPRO
  17. LANTUS [Concomitant]
     Active Substance: INSULIN GLARGINE
  18. PREVACID 24 HR [Suspect]
     Active Substance: LANSOPRAZOLE
     Route: 065
     Dates: start: 1991, end: 2016
  19. PROTONIX [Suspect]
     Active Substance: PANTOPRAZOLE SODIUM
     Route: 065
     Dates: start: 1991, end: 2016
  20. PROTONIX [Suspect]
     Active Substance: PANTOPRAZOLE SODIUM
     Route: 065
     Dates: start: 20050108
  21. FUROSEMIDE. [Concomitant]
     Active Substance: FUROSEMIDE
  22. CYCLOBENZAPRINE. [Concomitant]
     Active Substance: CYCLOBENZAPRINE
  23. TIZANIDINE. [Concomitant]
     Active Substance: TIZANIDINE
  24. EMLA [Concomitant]
     Active Substance: LIDOCAINE\PRILOCAINE
  25. PRILOSEC OTC [Suspect]
     Active Substance: OMEPRAZOLE MAGNESIUM
     Route: 048
     Dates: start: 1991, end: 2016
  26. ZOCOR [Concomitant]
     Active Substance: SIMVASTATIN
  27. ACTOS [Concomitant]
     Active Substance: PIOGLITAZONE HYDROCHLORIDE
  28. NEURONTIN [Concomitant]
     Active Substance: GABAPENTIN
  29. PRECOSE [Concomitant]
     Active Substance: ACARBOSE
  30. ANUCORT [Concomitant]
  31. METOCLOPRAMIDE. [Concomitant]
     Active Substance: METOCLOPRAMIDE
  32. PRILOSEC [Suspect]
     Active Substance: OMEPRAZOLE MAGNESIUM
     Dosage: GENERIC
     Route: 065
     Dates: start: 1991, end: 2016
  33. ADVAIR DISKUS [Concomitant]
     Active Substance: FLUTICASONE PROPIONATE\SALMETEROL XINAFOATE
  34. NITROSTAT [Concomitant]
     Active Substance: NITROGLYCERIN
  35. NEXIUM 24HR [Suspect]
     Active Substance: ESOMEPRAZOLE MAGNESIUM
     Route: 048
     Dates: start: 1991, end: 2016
  36. PRILOSEC [Suspect]
     Active Substance: OMEPRAZOLE MAGNESIUM
     Route: 048
     Dates: start: 1991, end: 2016
  37. PREVACID [Suspect]
     Active Substance: LANSOPRAZOLE
     Route: 048
     Dates: start: 20050830
  38. CIPROFLOXACIN. [Concomitant]
     Active Substance: CIPROFLOXACIN

REACTIONS (10)
  - Cardiac failure congestive [Unknown]
  - Acute kidney injury [Unknown]
  - Hyperkalaemia [Unknown]
  - Chronic kidney disease [Unknown]
  - Metabolic acidosis [Unknown]
  - Peripheral vascular disorder [Unknown]
  - Osteoarthritis [Unknown]
  - Urinary tract infection [Unknown]
  - Coronary artery disease [Unknown]
  - Renal failure [Unknown]

NARRATIVE: CASE EVENT DATE: 20070123
